FAERS Safety Report 4617060-5 (Version None)
Quarter: 2005Q1

REPORT INFORMATION
  Report Type: 
  Country: None (occurrence: None)
  Receive Date: 20050323
  Receipt Date: 20050315
  Transmission Date: 20050727
  Serious: Yes (Hospitalization)
  Sender: FDA-Public Use
  Company Number: PHFR2005GB01231

PATIENT
  Sex: Female

DRUGS (3)
  1. DIOVAN [Suspect]
     Dosage: 160 MG, QD
     Route: 048
  2. DIOVAN [Suspect]
     Dosage: 160 MG, BID
     Route: 048
  3. VANCOMYCIN [Concomitant]

REACTIONS (1)
  - THROMBOCYTOPENIA [None]
